FAERS Safety Report 18633293 (Version 1)
Quarter: 2020Q4

REPORT INFORMATION
  Report Type: Spontaneous
  Country: NL (occurrence: NL)
  Receive Date: 20201218
  Receipt Date: 20201218
  Transmission Date: 20210114
  Serious: Yes (Hospitalization)
  Sender: FDA-Public Use
  Company Number: NL-TEVA-2020-NL-1858989

PATIENT
  Sex: Female

DRUGS (4)
  1. ETHINYLESTRADIOL/DROSPIRENON TAB 30UG/3MG / BRAND NAME NOT SPECIFIED [Concomitant]
     Dosage: 30 UG (MICROGRAM) / 3 MG (MILLIGRAM), THERAPY START DATE; THERAPY END DATE : ASKED BUT UNKNOWN
  2. OXAZEPAM TABLET 10MG / BRAND NAME NOT SPECIFIED [Concomitant]
     Active Substance: OXAZEPAM
     Dosage: 10 MG (MILLIGRAM), THERAPY START DATE; THERAPY END DATE : ASKED BUT UNKNOWN
  3. ISOTRETINOINE CAPSULE ZACHT 20MG / BRAND NAME NOT SPECIFIED [Suspect]
     Active Substance: ISOTRETINOIN
     Indication: ACNE
     Dosage: 1X PER DAY 2 CAPSULES. DOSAGE VARIED BETWEEN 1 OR 2 CAPSULES PER DAY, THERAPY END DATE: ASKU
     Dates: start: 20201028
  4. PAROXETINE TABLET 20MG / BRAND NAME NOT SPECIFIED [Suspect]
     Active Substance: PAROXETINE
     Indication: DEPRESSION
     Dosage: 20 MILLIGRAM DAILY;
     Dates: start: 20201028, end: 20201124

REACTIONS (1)
  - Serotonin syndrome [Recovering/Resolving]
